FAERS Safety Report 6198410-8 (Version None)
Quarter: 2009Q2

REPORT INFORMATION
  Report Type: 
  Country: None (occurrence: None)
  Receive Date: 20090518
  Receipt Date: 20090330
  Transmission Date: 20091009
  Serious: No
  Sender: FDA-Public Use
  Company Number: WAES 0811USA01412

PATIENT
  Age: 67 Year
  Sex: Female
  Weight: 89.8122 kg

DRUGS (11)
  1. ISENTRESS [Suspect]
     Indication: HIV INFECTION
     Dosage: 400 MG/BID/PO
     Route: 048
     Dates: start: 20080818, end: 20080930
  2. COMBIVIR [Suspect]
     Dosage: BID
  3. CELEXA [Concomitant]
  4. NEXIUM [Concomitant]
  5. DARUNAVIR [Concomitant]
  6. GABAPENTIN [Concomitant]
  7. IBUPROFEN [Concomitant]
  8. LISINOPRIL [Concomitant]
  9. RITONAVIR [Concomitant]
  10. TRAZODONE HYDROCHLORIDE [Concomitant]
  11. VERAPAMIL [Concomitant]

REACTIONS (3)
  - ANAEMIA [None]
  - NEUTROPENIA [None]
  - RENAL FAILURE [None]
